FAERS Safety Report 8410982-9 (Version None)
Quarter: 2012Q2

REPORT INFORMATION
  Report Type: 
  Country: None (occurrence: None)
  Receive Date: 20120529
  Receipt Date: 20060404
  Transmission Date: 20120825
  Serious: Yes (Hospitalization)
  Sender: FDA-Public Use
  Company Number: 15691-USA-06-1013

PATIENT
  Age: 80 Year
  Sex: Female

DRUGS (13)
  1. DOCUSATE SODIUM (DOCUSATE SODIUM) [Concomitant]
  2. IRON-DEXTRAN COMPLEX INJ [Concomitant]
  3. TORSEMIDE [Concomitant]
  4. DIGOXIN [Concomitant]
  5. AMIODARONE HCL [Concomitant]
  6. SIMVASTATIN [Concomitant]
  7. WARFARIN SODIUM [Concomitant]
  8. ASPIRIN [Concomitant]
  9. TOLVAPTAN (TOLVAPTAN (V4.1)) 30MG [Suspect]
     Indication: CARDIAC FAILURE CONGESTIVE
     Dosage: 30 MG, QD, ORAL
     Route: 048
     Dates: start: 20051019, end: 20060403
  10. PAROXETINE HCL [Concomitant]
  11. MULTIVITAMIN [Concomitant]
  12. METOLAZONE [Concomitant]
  13. ESOMEPRAZOLE MAGNESIUM [Concomitant]

REACTIONS (16)
  - RENAL FAILURE ACUTE [None]
  - DEHYDRATION [None]
  - MALAISE [None]
  - PROTHROMBIN TIME PROLONGED [None]
  - BLOOD CALCIUM INCREASED [None]
  - ESCHERICHIA URINARY TRACT INFECTION [None]
  - CONFUSIONAL STATE [None]
  - ATELECTASIS [None]
  - CARDIOMEGALY [None]
  - PNEUMONIA [None]
  - BLOOD SODIUM DECREASED [None]
  - SOMNOLENCE [None]
  - FATIGUE [None]
  - BLOOD GLUCOSE INCREASED [None]
  - WEIGHT DECREASED [None]
  - URINARY INCONTINENCE [None]
